FAERS Safety Report 11840601 (Version 5)
Quarter: 2016Q1

REPORT INFORMATION
  Report Type: Report from Study
  Country: RU (occurrence: RU)
  Receive Date: 20151216
  Receipt Date: 20160120
  Transmission Date: 20160525
  Serious: Yes (Life-Threatening, Hospitalization, Other)
  Sender: FDA-Public Use
  Company Number: RU-PFIZER INC-2015443414

PATIENT
  Age: 55 Year
  Sex: Female
  Weight: 56 kg

DRUGS (8)
  1. MERTENIL [Concomitant]
     Indication: DYSLIPIDAEMIA
     Dosage: 10 MG, QD
     Route: 048
     Dates: start: 20150618
  2. FOLACINE [Concomitant]
     Indication: RHEUMATOID ARTHRITIS
     Dosage: 10 MG, QW
     Route: 048
     Dates: start: 20120905
  3. METHOTREXATE SODIUM. [Suspect]
     Active Substance: METHOTREXATE SODIUM
     Indication: RHEUMATOID ARTHRITIS
     Dosage: 15 MG, QW
     Route: 048
     Dates: start: 20120905, end: 20151127
  4. VIGANTOL /00318501/ [Concomitant]
     Indication: OSTEOPOROSIS
     Dosage: 4 DROPS, QD
     Route: 048
     Dates: start: 20150324
  5. NATECAL D3 [Concomitant]
     Active Substance: CALCIUM CARBONATE\CHOLECALCIFEROL
     Indication: OSTEOPOROSIS
     Dosage: 1 TAB, BID
     Route: 048
     Dates: start: 20150324
  6. PREDNISOLONE. [Concomitant]
     Active Substance: PREDNISOLONE
     Indication: RHEUMATOID ARTHRITIS
     Dosage: 7.5 MG, QD
     Route: 048
     Dates: start: 19960130, end: 20151210
  7. TOFACITINIB CITRATE [Suspect]
     Active Substance: TOFACITINIB CITRATE
     Indication: RHEUMATOID ARTHRITIS
     Dosage: 5 MG, BID
     Route: 048
     Dates: start: 20141211, end: 20151203
  8. ALENDRONATE [Concomitant]
     Active Substance: ALENDRONATE SODIUM
     Indication: OSTEOPOROSIS
     Dosage: 70 MG, QW
     Route: 048
     Dates: start: 20150324

REACTIONS (2)
  - Herpes zoster disseminated [Recovered/Resolved]
  - Pancreatitis chronic [Recovered/Resolved]

NARRATIVE: CASE EVENT DATE: 20151201
